FAERS Safety Report 10043546 (Version 1)
Quarter: 2014Q1

REPORT INFORMATION
  Report Type: Spontaneous
  Country: US (occurrence: US)
  Receive Date: 20140328
  Receipt Date: 20140328
  Transmission Date: 20141002
  Serious: No
  Sender: FDA-Public Use
  Company Number: US-009507513-1403USA008890

PATIENT
  Sex: Male

DRUGS (3)
  1. PROVENTIL [Suspect]
     Indication: ASTHMA EXERCISE INDUCED
     Dosage: 2 PUFFS EVERY 4 HOURS AS NEEDED
     Route: 055
  2. ALBUTEROL SULFATE [Suspect]
     Dosage: UNK
     Route: 055
  3. XOPENEX [Concomitant]

REACTIONS (3)
  - Tremor [Recovered/Resolved]
  - Drug dose omission [Unknown]
  - Product quality issue [Unknown]
